FAERS Safety Report 21296573 (Version 3)
Quarter: 2022Q3

REPORT INFORMATION
  Report Type: Spontaneous
  Country: US (occurrence: US)
  Receive Date: 20220906
  Receipt Date: 20220909
  Transmission Date: 20221026
  Serious: Yes (Death, Hospitalization, Other)
  Sender: FDA-Public Use
  Company Number: US-UNITED THERAPEUTICS-UNT-2022-020278

PATIENT
  Sex: Male

DRUGS (2)
  1. TYVASO [Suspect]
     Active Substance: TREPROSTINIL
     Indication: Pulmonary arterial hypertension
     Dosage: UNK
     Dates: start: 20220706
  2. TYVASO [Suspect]
     Active Substance: TREPROSTINIL
     Dosage: 72 ?G, QID
     Dates: start: 2022

REACTIONS (10)
  - Death [Fatal]
  - Pericardial effusion [Unknown]
  - Oxygen saturation decreased [Unknown]
  - Dyspnoea [Not Recovered/Not Resolved]
  - Chest pain [Unknown]
  - Pleural effusion [Unknown]
  - Respiratory tract congestion [Unknown]
  - Productive cough [Unknown]
  - Chest discomfort [Unknown]
  - Heart rate increased [Unknown]

NARRATIVE: CASE EVENT DATE: 20220101
